FAERS Safety Report 7314606 (Version 5)
Quarter: 2013Q4

REPORT INFORMATION
  Report Type: Spontaneous
  Country: US (occurrence: US)
  Receive Date: 20100311
  Receipt Date: 20131125
  Transmission Date: 20140711
  Serious: Yes (Hospitalization, Other)
  Sender: FDA-Public Use
  Company Number: US-BAYER-201016091NA

PATIENT
  Age: 25 Year
  Sex: Female
  Weight: 75 kg

DRUGS (11)
  1. YAZ [Suspect]
     Route: 048
  2. YASMIN [Suspect]
     Dosage: 3 MONTH SAMPLES RECEIVED 2001
     Route: 048
     Dates: start: 200102, end: 200509
  3. OTHER ANALGESICS AND ANTIPYRETICS [Concomitant]
     Indication: MIGRAINE
     Dosage: OTC
  4. NSAID^S [Concomitant]
     Indication: PRODUCT USED FOR UNKNOWN INDICATION
     Dosage: OTC (NOS)
  5. XOPENEX [Concomitant]
     Indication: MULTIPLE ALLERGIES
  6. ALBUTEROL [Concomitant]
     Indication: ASTHMA
  7. ALLEGRA [Concomitant]
     Indication: HYPERSENSITIVITY
  8. PHENTERMINE [Concomitant]
  9. SEREVENT [Concomitant]
  10. FLOVENT [Concomitant]
  11. ELIDEL [Concomitant]

REACTIONS (3)
  - Cholecystectomy [Unknown]
  - Cholecystitis chronic [None]
  - Injury [None]
